FAERS Safety Report 4326922-8 (Version None)
Quarter: 2004Q1

REPORT INFORMATION
  Report Type: 
  Country: None (occurrence: None)
  Receive Date: 20040330
  Receipt Date: 20040319
  Transmission Date: 20041129
  Serious: Yes (Hospitalization)
  Sender: FDA-Public Use
  Company Number: FR-ROCHE-363080

PATIENT
  Age: 14 Year
  Sex: Female

DRUGS (3)
  1. CELLCEPT [Suspect]
     Indication: HEART TRANSPLANT
     Route: 048
  2. CORTANCYL [Concomitant]
     Indication: HEART TRANSPLANT
     Route: 065
  3. NEORAL [Concomitant]
     Indication: HEART TRANSPLANT
     Route: 065

REACTIONS (2)
  - LOSS OF CONSCIOUSNESS [None]
  - TACHYCARDIA [None]
